FAERS Safety Report 8620877-3 (Version None)
Quarter: 2012Q3

REPORT INFORMATION
  Report Type: 
  Country: None (occurrence: None)
  Receive Date: 20120824
  Receipt Date: 20120808
  Transmission Date: 20120928
  Serious: Yes (Other)
  Sender: FDA-Public Use
  Company Number: US-VERTEX PHARMACEUTICAL INC.-AE-2012-008247

PATIENT

DRUGS (5)
  1. PEGASYS [Concomitant]
     Indication: HEPATITIS C
     Route: 058
     Dates: start: 20120525
  2. INCIVEK [Suspect]
     Indication: HEPATITIS C
     Route: 048
     Dates: start: 20120525
  3. RIBAVIRIN [Concomitant]
     Indication: HEPATITIS C
     Route: 048
     Dates: start: 20120525
  4. LORAZEPAM [Concomitant]
  5. SERTRALINE HYDROCHLORIDE [Concomitant]

REACTIONS (13)
  - TREMOR [None]
  - FATIGUE [None]
  - MUSCULOSKELETAL STIFFNESS [None]
  - DECREASED APPETITE [None]
  - HAEMATOCHEZIA [None]
  - DIARRHOEA [None]
  - EMOTIONAL DISORDER [None]
  - WEIGHT DECREASED [None]
  - ANORECTAL DISCOMFORT [None]
  - HAEMORRHOIDAL HAEMORRHAGE [None]
  - ANAL PRURITUS [None]
  - RASH GENERALISED [None]
  - PRURITUS [None]
